FAERS Safety Report 7020912-2 (Version None)
Quarter: 2010Q3

REPORT INFORMATION
  Report Type: 
  Country: None (occurrence: None)
  Receive Date: 20100929
  Receipt Date: 20100921
  Transmission Date: 20110219
  Serious: Yes (Life-Threatening, Hospitalization)
  Sender: FDA-Public Use
  Company Number: JP-PFIZER INC-2009275224

PATIENT
  Age: 63 Year
  Sex: Female
  Weight: 70 kg

DRUGS (9)
  1. SUNITINIB MALATE [Suspect]
     Indication: RENAL CELL CARCINOMA
     Dosage: 25 MG, 2X/DAY
     Route: 048
     Dates: start: 20090810, end: 20090830
  2. THYRADIN S [Concomitant]
     Dosage: UNK
     Route: 048
     Dates: start: 20090817, end: 20090830
  3. TAKEPRON [Concomitant]
     Dosage: UNK
     Route: 048
  4. MYSLEE [Concomitant]
     Route: 048
  5. RELIFEN [Concomitant]
     Route: 048
  6. OXYCONTIN [Concomitant]
     Route: 048
  7. MAG-LAX [Concomitant]
     Route: 048
  8. RIVOTRIL [Concomitant]
     Route: 048
  9. BASEN [Concomitant]
     Route: 048

REACTIONS (2)
  - INTERSTITIAL LUNG DISEASE [None]
  - PYREXIA [None]
